FAERS Safety Report 25009801 (Version 1)
Quarter: 2025Q1

REPORT INFORMATION
  Report Type: Spontaneous
  Country: FR (occurrence: FR)
  Receive Date: 20250225
  Receipt Date: 20250225
  Transmission Date: 20250409
  Serious: Yes (Hospitalization, Other)
  Sender: SANOFI AVENTIS
  Company Number: None

PATIENT
  Age: 78 Year
  Sex: Female

DRUGS (2)
  1. RIFAMPIN [Suspect]
     Active Substance: RIFAMPIN
     Indication: Bacterial infection
     Dosage: 900 MG, QD
     Route: 048
     Dates: start: 20241126, end: 20241211
  2. RIFAMPIN [Suspect]
     Active Substance: RIFAMPIN
     Dosage: 300 MG, Q8H
     Route: 042
     Dates: start: 20241212, end: 20241217

REACTIONS (2)
  - Rectal haemorrhage [Recovered/Resolved]
  - Anaemia [Recovered/Resolved]

NARRATIVE: CASE EVENT DATE: 20241217
